FAERS Safety Report 16642846 (Version 1)
Quarter: 2019Q3

REPORT INFORMATION
  Report Type: Spontaneous
  Country: US (occurrence: US)
  Receive Date: 20190728
  Receipt Date: 20190728
  Transmission Date: 20191004
  Serious: Yes (Disabling, Other)
  Sender: FDA-Public Use
  Company Number: None

PATIENT
  Age: 60 Year
  Sex: Male
  Weight: 82.8 kg

DRUGS (15)
  1. AMLODIPINE [Concomitant]
     Active Substance: AMLODIPINE BESYLATE
  2. LISINOPRIL-HCTZ [Concomitant]
     Active Substance: HYDROCHLOROTHIAZIDE\LISINOPRIL
  3. OMEPRAZOLE. [Concomitant]
     Active Substance: OMEPRAZOLE
  4. TIZANADINE [Concomitant]
     Active Substance: TIZANIDINE
  5. CELECOXIB 100 MG CAPSULE [Suspect]
     Active Substance: CELECOXIB
     Indication: INFLAMMATION
     Dosage: ?          QUANTITY:1 CAPSULE(S);?
     Route: 048
     Dates: start: 20190714, end: 20190728
  6. TRAZODONE [Concomitant]
     Active Substance: TRAZODONE HYDROCHLORIDE
  7. VITAMIN D3 [Concomitant]
     Active Substance: CHOLECALCIFEROL
  8. TESTOSTERONE CYPIONATE. [Concomitant]
     Active Substance: TESTOSTERONE CYPIONATE
  9. BUPRENORPHINE- [Concomitant]
  10. PRAVASTATIN. [Concomitant]
     Active Substance: PRAVASTATIN
  11. VENTOLIN [Concomitant]
     Active Substance: ALBUTEROL SULFATE
  12. CELECOXIB 100 MG CAPSULE [Suspect]
     Active Substance: CELECOXIB
     Indication: ARTHRALGIA
     Dosage: ?          QUANTITY:1 CAPSULE(S);?
     Route: 048
     Dates: start: 20190714, end: 20190728
  13. CELECOXIB. [Concomitant]
     Active Substance: CELECOXIB
  14. ZYRTEC [Concomitant]
     Active Substance: CETIRIZINE HYDROCHLORIDE
  15. FLONACE [Concomitant]

REACTIONS (5)
  - Product substitution issue [None]
  - Inflammation [None]
  - Arthralgia [None]
  - Swelling [None]
  - Pain in extremity [None]

NARRATIVE: CASE EVENT DATE: 20190716
